FAERS Safety Report 12164139 (Version 2)
Quarter: 2016Q1

REPORT INFORMATION
  Report Type: Spontaneous
  Country: CH (occurrence: GB)
  Receive Date: 20160309
  Receipt Date: 20160316
  Transmission Date: 20160526
  Serious: Yes (Hospitalization)
  Sender: FDA-Public Use
  Company Number: CH-LPDUSPRD-20160196

PATIENT
  Age: 22 Year
  Sex: Female

DRUGS (1)
  1. FERINJECT [Suspect]
     Active Substance: FERRIC CARBOXYMALTOSE
     Dosage: 1000 MG
     Route: 041
     Dates: start: 20160213, end: 20160213

REACTIONS (7)
  - Vomiting [Recovering/Resolving]
  - Pyrexia [Recovering/Resolving]
  - Sepsis [Unknown]
  - Tachycardia [Recovering/Resolving]
  - Exposure during pregnancy [Unknown]
  - Malaise [Recovering/Resolving]
  - Extravasation [Recovering/Resolving]

NARRATIVE: CASE EVENT DATE: 20160214
